FAERS Safety Report 4333846-9 (Version None)
Quarter: 2004Q2

REPORT INFORMATION
  Report Type: 
  Country: None (occurrence: None)
  Receive Date: 20040402
  Receipt Date: 20040321
  Transmission Date: 20050107
  Serious: Yes (Hospitalization, Other)
  Sender: FDA-Public Use
  Company Number: HQWYE028823MAR04

PATIENT
  Age: 4 Year
  Sex: Male
  Weight: 14.8 kg

DRUGS (9)
  1. RAPAMUNE [Suspect]
     Indication: IMMUNOSUPPRESSANT DRUG THERAPY
     Dosage: 2.5 MG 2X PER 1 DAY, ORAL
     Route: 048
     Dates: start: 20030819
  2. CELLCEPT [Concomitant]
  3. PREDNISONE [Concomitant]
  4. BACTRIM [Concomitant]
  5. GANCICLOVIR SODIUM [Concomitant]
  6. LIPITOR [Concomitant]
  7. NORVASC [Concomitant]
  8. K-PHOS (POTASSIUM PHOSPHATE MONOBASIC) [Concomitant]
  9. AMOXICILLIN [Concomitant]

REACTIONS (3)
  - FEBRILE CONVULSION [None]
  - INFLUENZA [None]
  - MENINGITIS [None]
